FAERS Safety Report 6709959-0 (Version None)
Quarter: 2010Q2

REPORT INFORMATION
  Report Type: 
  Country: None (occurrence: None)
  Receive Date: 20100503
  Receipt Date: 20100503
  Transmission Date: 20101027
  Serious: Yes (Hospitalization, Other)
  Sender: FDA-Public Use
  Company Number: None

PATIENT
  Sex: Female
  Weight: 8.1647 kg

DRUGS (2)
  1. TYLENOL (CAPLET) [Suspect]
     Indication: PAIN
     Dosage: 1.2 ML 4-6 HRS PO
     Route: 048
     Dates: start: 20091201, end: 20100501
  2. TYLENOL (CAPLET) [Suspect]
     Indication: PYREXIA
     Dosage: 1.2 ML 4-6 HRS PO
     Route: 048
     Dates: start: 20091201, end: 20100501

REACTIONS (5)
  - DIARRHOEA [None]
  - NO THERAPEUTIC RESPONSE [None]
  - POOR QUALITY DRUG ADMINISTERED [None]
  - PRODUCT QUALITY ISSUE [None]
  - PYREXIA [None]
